FAERS Safety Report 9130843 (Version 2)
Quarter: 2013Q2

REPORT INFORMATION
  Report Type: Spontaneous
  Country: IE (occurrence: IE)
  Receive Date: 20130301
  Receipt Date: 20130405
  Transmission Date: 20140414
  Serious: Yes (Other)
  Sender: FDA-Public Use
  Company Number: IE-PFIZER INC-2013032046

PATIENT
  Age: 70 Year
  Sex: Female
  Weight: 80 kg

DRUGS (7)
  1. EFEXOR XL [Suspect]
     Indication: DEPRESSION
     Dosage: 225 MG, 2X/DAY
     Route: 048
     Dates: start: 201208
  2. EFEXOR XL [Suspect]
     Dosage: 225 MG, 1X/DAY
  3. EFEXOR XL [Suspect]
     Dosage: 75 MG, 1X/DAY
  4. LITHIUM CARBONATE [Suspect]
     Dosage: 200 MG, UNK
     Route: 048
  5. ZISPIN [Concomitant]
     Dosage: 30 MG, 1X/DAY
     Route: 048
     Dates: start: 20120930
  6. ZYPREXA [Concomitant]
     Dosage: 1.25 MG, 1X/DAY
     Route: 048
  7. DIAZEPAM [Concomitant]
     Dosage: 2 MG, 2X/DAY
     Route: 048

REACTIONS (3)
  - Palatal oedema [Recovering/Resolving]
  - Dermatitis acneiform [Not Recovered/Not Resolved]
  - Plicated tongue [Recovered/Resolved]
